FAERS Safety Report 6547408-6 (Version None)
Quarter: 2010Q1

REPORT INFORMATION
  Report Type: 
  Country: None (occurrence: None)
  Receive Date: 20100122
  Receipt Date: 20100119
  Transmission Date: 20100710
  Serious: Yes (Death)
  Sender: FDA-Public Use
  Company Number: PHHY2010AR02641

PATIENT
  Sex: Male

DRUGS (1)
  1. EXELON [Suspect]
     Indication: MENTAL IMPAIRMENT
     Dosage: 3 MG, QD
     Route: 048

REACTIONS (2)
  - GENERAL PHYSICAL HEALTH DETERIORATION [None]
  - HYPOPHAGIA [None]
